FAERS Safety Report 18000047 (Version 3)
Quarter: 2024Q4

REPORT INFORMATION
  Report Type: Spontaneous
  Country: ES (occurrence: ES)
  Receive Date: 20200709
  Receipt Date: 20241203
  Transmission Date: 20250115
  Serious: Yes (Other)
  Sender: MYLAN
  Company Number: ES-SA-2020SA160889

PATIENT
  Age: 23 Year
  Sex: Male

DRUGS (4)
  1. PHENYTOIN SODIUM [Suspect]
     Active Substance: PHENYTOIN SODIUM
     Indication: Epilepsy
     Dosage: 100 MG, 3X/DAY (DOSAGE UNIT FREQUENCY: 300 MG-MILLIGRAMS || DOSE PER VOLUME: 100 MG-MILLIGRAMS)
     Route: 048
     Dates: start: 2007
  2. PHENYTOIN SODIUM [Suspect]
     Active Substance: PHENYTOIN SODIUM
     Indication: Seizure
  3. IBUPROFEN [Suspect]
     Active Substance: IBUPROFEN
     Indication: Muscle contracture
     Dosage: UNK
     Route: 065
     Dates: start: 2007
  4. DIAZEPAM [Suspect]
     Active Substance: DIAZEPAM
     Indication: Muscle contracture
     Dosage: UNK
     Route: 065
     Dates: start: 2007

REACTIONS (6)
  - Pruritus [Recovered/Resolved]
  - Drug reaction with eosinophilia and systemic symptoms [Recovered/Resolved]
  - Pyrexia [Recovered/Resolved]
  - Rash maculo-papular [Recovered/Resolved]
  - Lymphadenopathy [Recovered/Resolved]
  - Eosinophilia [Recovered/Resolved]

NARRATIVE: CASE EVENT DATE: 20070101
